FAERS Safety Report 17680478 (Version 1)
Quarter: 2020Q2

REPORT INFORMATION
  Report Type: Spontaneous
  Country: CA (occurrence: CA)
  Receive Date: 20200417
  Receipt Date: 20200417
  Transmission Date: 20200714
  Serious: Yes (Hospitalization)
  Sender: FDA-Public Use
  Company Number: CA-TEVA-2020-CA-1223308

PATIENT
  Age: 10 Year
  Sex: Male

DRUGS (7)
  1. PENTOBARBITAL. [Suspect]
     Active Substance: PENTOBARBITAL
     Indication: PARTIAL SEIZURES
     Route: 065
  2. LORAZEPAM. [Suspect]
     Active Substance: LORAZEPAM
     Indication: PARTIAL SEIZURES
     Route: 065
  3. VALPROIC ACID. [Suspect]
     Active Substance: VALPROIC ACID
     Indication: PARTIAL SEIZURES
     Route: 065
  4. ACYCLOVIR. [Concomitant]
     Active Substance: ACYCLOVIR
  5. CEFTRIAXONE SODIUM. [Concomitant]
     Active Substance: CEFTRIAXONE SODIUM
  6. VANCOMYCIN [Concomitant]
     Active Substance: VANCOMYCIN
  7. LEVETIRACETAM. [Suspect]
     Active Substance: LEVETIRACETAM
     Indication: PARTIAL SEIZURES
     Route: 065

REACTIONS (5)
  - Rash maculo-papular [Unknown]
  - Seizure [Unknown]
  - Eosinophilia [Unknown]
  - Drug ineffective [Unknown]
  - Drug hypersensitivity [Unknown]
